FAERS Safety Report 8822393 (Version 3)
Quarter: 2012Q4

REPORT INFORMATION
  Report Type: 
  Country: DE (occurrence: DE)
  Receive Date: 20121003
  Receipt Date: 20121108
  Transmission Date: 20130627
  Serious: Yes (Hospitalization)
  Sender: FDA-Public Use
  Company Number: DE-JNJFOC-20120704123

PATIENT
  Sex: Female

DRUGS (4)
  1. XEPLION [Suspect]
     Indication: PSYCHOTIC DISORDER
     Route: 030
     Dates: start: 20120510, end: 20120510
  2. XEPLION [Suspect]
     Indication: PSYCHOTIC DISORDER
     Route: 030
     Dates: start: 20120418, end: 20120418
  3. XEPLION [Suspect]
     Indication: PSYCHOTIC DISORDER
     Route: 030
     Dates: start: 20120411, end: 20120411
  4. XEPLION [Suspect]
     Indication: PSYCHOTIC DISORDER
     Route: 030
     Dates: start: 201206, end: 201206

REACTIONS (7)
  - Pain in extremity [Recovering/Resolving]
  - Skin induration [Recovering/Resolving]
  - Nodule [Recovering/Resolving]
  - Erythema [Recovering/Resolving]
  - Lethargy [Recovering/Resolving]
  - Schizophrenia [Recovering/Resolving]
  - Injection site warmth [Recovering/Resolving]
